FAERS Safety Report 5151721-7 (Version None)
Quarter: 2006Q4

REPORT INFORMATION
  Report Type: 
  Country: None (occurrence: None)
  Receive Date: 20061107
  Receipt Date: 20061024
  Transmission Date: 20070319
  Serious: Yes (Other)
  Sender: FDA-Public Use
  Company Number: THYM-11146

PATIENT

DRUGS (2)
  1. THYMOGLOBULIN [Suspect]
     Indication: DRUG USE FOR UNKNOWN INDICATION
     Dosage: 100 MG IV
     Route: 042
  2. METHYLPREDNISOLONE [Concomitant]

REACTIONS (5)
  - CYTOKINE RELEASE SYNDROME [None]
  - HYPOTENSION [None]
  - TACHYCARDIA [None]
  - THROMBOCYTOPENIA [None]
  - TREMOR [None]
